FAERS Safety Report 13502642 (Version 1)
Quarter: 2017Q2

REPORT INFORMATION
  Report Type: Spontaneous
  Country: US (occurrence: US)
  Receive Date: 20170501
  Receipt Date: 20170501
  Transmission Date: 20170830
  Serious: Yes (Life-Threatening, Hospitalization, Disabling)
  Sender: FDA-Public Use
  Company Number: None

PATIENT
  Age: 53 Year
  Sex: Female
  Weight: 58.5 kg

DRUGS (3)
  1. MULTIVITAMIN [Concomitant]
     Active Substance: VITAMINS
  2. CHLORHEXIDINE [Suspect]
     Active Substance: CHLORHEXIDINE
     Indication: INFECTION PROPHYLAXIS
     Dates: start: 20140128
  3. PROBIOTIC [Concomitant]
     Active Substance: PROBIOTICS NOS

REACTIONS (8)
  - Eye swelling [None]
  - Swelling face [None]
  - Dyspnoea [None]
  - Urticaria [None]
  - Hypersensitivity [None]
  - Swollen tongue [None]
  - Lip swelling [None]
  - Pharyngeal oedema [None]

NARRATIVE: CASE EVENT DATE: 20140128
